FAERS Safety Report 8061611-8 (Version None)
Quarter: 2012Q1

REPORT INFORMATION
  Report Type: 
  Country: None (occurrence: None)
  Receive Date: 20120122
  Receipt Date: 20120117
  Transmission Date: 20120608
  Serious: Yes (Other)
  Sender: FDA-Public Use
  Company Number: TR-ROXANE LABORATORIES, INC.-2012-RO-00485RO

PATIENT
  Age: 9 Year
  Sex: Female
  Weight: 22 kg

DRUGS (5)
  1. CYCLOPHOSPHAMIDE [Suspect]
     Indication: MYELODYSPLASTIC SYNDROME
  2. BUSULFAN [Suspect]
     Indication: MYELODYSPLASTIC SYNDROME
  3. METHYLPREDNISOLONE [Suspect]
     Indication: GRAFT VERSUS HOST DISEASE
  4. METHOTREXATE [Suspect]
     Indication: PROPHYLAXIS
  5. CYCLOSPORINE [Suspect]
     Indication: PROPHYLAXIS

REACTIONS (2)
  - GRAFT VERSUS HOST DISEASE [None]
  - PRIMARY ADRENAL INSUFFICIENCY [None]
